FAERS Safety Report 21519306 (Version 1)
Quarter: 2022Q4

REPORT INFORMATION
  Report Type: Spontaneous
  Country: CN (occurrence: None)
  Receive Date: 20221028
  Receipt Date: 20221028
  Transmission Date: 20230113
  Serious: Yes (Other)
  Sender: FDA-Public Use
  Company Number: 2022A354491

PATIENT
  Age: 57 Year
  Sex: Male

DRUGS (2)
  1. GEFITINIB [Suspect]
     Active Substance: GEFITINIB
     Indication: Lung adenocarcinoma
     Route: 048
  2. GEFITINIB [Suspect]
     Active Substance: GEFITINIB
     Indication: EGFR gene mutation
     Route: 048

REACTIONS (2)
  - Metastases to central nervous system [Recovering/Resolving]
  - Drug resistance [Recovering/Resolving]
